FAERS Safety Report 9225685 (Version 1)
Quarter: 2013Q2

REPORT INFORMATION
  Report Type: Spontaneous
  Country: US (occurrence: None)
  Receive Date: 20130410
  Receipt Date: 20130410
  Transmission Date: 20140414
  Serious: Yes (Hospitalization)
  Sender: FDA-Public Use
  Company Number: None

PATIENT
  Age: 88 Year
  Sex: Female
  Weight: 72.2 kg

DRUGS (18)
  1. MOBIC [Suspect]
     Indication: ARTHRITIS
     Dosage: CHRONIC
     Route: 048
  2. ASA [Suspect]
     Dosage: RECENT
     Route: 048
  3. PLAVIX [Suspect]
     Dosage: CHRONIC
  4. NORVASC [Concomitant]
  5. CA [Concomitant]
  6. VIT D+B12 [Concomitant]
  7. EXELON [Concomitant]
  8. FLONASE [Concomitant]
  9. ADVAIR [Concomitant]
  10. LOZOL [Concomitant]
  11. MIRALAX [Concomitant]
  12. SYNTHROID [Concomitant]
  13. NAMENDA [Concomitant]
  14. TOPROL XL [Concomitant]
  15. MVI [Concomitant]
  16. PRAVACHOL [Concomitant]
  17. DIGOXIN [Concomitant]
  18. APAP [Concomitant]

REACTIONS (4)
  - Anaemia [None]
  - Hypokalaemia [None]
  - Gastrointestinal haemorrhage [None]
  - Duodenal ulcer [None]
